FAERS Safety Report 15607926 (Version 1)
Quarter: 2018Q4

REPORT INFORMATION
  Report Type: Spontaneous
  Country: FI (occurrence: FI)
  Receive Date: 20181112
  Receipt Date: 20181112
  Transmission Date: 20190205
  Serious: Yes (Hospitalization)
  Sender: FDA-Public Use
  Company Number: FI-ELI_LILLY_AND_COMPANY-FI201811002813

PATIENT
  Age: 19 Year
  Sex: Male

DRUGS (3)
  1. ZYPADHERA [Suspect]
     Active Substance: OLANZAPINE PAMOATE
     Indication: PSYCHOTIC DISORDER
     Dosage: UNK UNK, UNKNOWN
     Route: 030
     Dates: start: 20180912
  2. AKINETON [BIPERIDEN] [Concomitant]
     Indication: EXTRAPYRAMIDAL DISORDER
     Dosage: 4,MG,DAILY
     Route: 048
     Dates: start: 20180930
  3. SERENASE DEKANOAT [Concomitant]
     Indication: PSYCHOTIC DISORDER
     Dosage: 5,MG,DAILY
     Route: 048
     Dates: start: 20180914

REACTIONS (5)
  - Incorrect route of product administration [Recovered/Resolved]
  - Restlessness [Recovered/Resolved]
  - Anxiety [Recovered/Resolved]
  - Disorientation [Recovered/Resolved]
  - Depressed level of consciousness [Recovered/Resolved]

NARRATIVE: CASE EVENT DATE: 20181010
